FAERS Safety Report 16652702 (Version 2)
Quarter: 2020Q4

REPORT INFORMATION
  Report Type: Spontaneous
  Country: US (occurrence: US)
  Receive Date: 20190731
  Receipt Date: 20201005
  Transmission Date: 20210113
  Serious: Yes (Other)
  Sender: FDA-Public Use
  Company Number: US-PFIZER INC-2017424055

PATIENT
  Age: 52 Year
  Sex: Female
  Weight: 86.18 kg

DRUGS (3)
  1. ARTHROTEC [Suspect]
     Active Substance: DICLOFENAC SODIUM\MISOPROSTOL
     Indication: CERVICAL CORD COMPRESSION
     Dosage: 50 MG, UNK (50/02 1 QID)(50MG/1-4X DAY)
  2. ARTHROTEC [Suspect]
     Active Substance: DICLOFENAC SODIUM\MISOPROSTOL
     Indication: DIABETIC NEUROPATHY
     Dosage: UNK(STRENGTH: 50- 0.2 MG)
  3. ARTHROTEC [Suspect]
     Active Substance: DICLOFENAC SODIUM\MISOPROSTOL
     Indication: PAIN
     Dosage: 50 MG (IN THE MORNING AND EVENING)
     Dates: start: 2008

REACTIONS (5)
  - Off label use [Unknown]
  - Spinal cord injury [Not Recovered/Not Resolved]
  - Pneumonia [Not Recovered/Not Resolved]
  - Pain in extremity [Not Recovered/Not Resolved]
  - Product use in unapproved indication [Unknown]

NARRATIVE: CASE EVENT DATE: 2008
